FAERS Safety Report 5526234-0 (Version None)
Quarter: 2007Q4

REPORT INFORMATION
  Report Type: 
  Country: None (occurrence: None)
  Receive Date: 20071127
  Receipt Date: 20071116
  Transmission Date: 20080405
  Serious: Yes (Other)
  Sender: FDA-Public Use
  Company Number: PHBS2007BR19470

PATIENT
  Age: 32 Year
  Sex: Female
  Weight: 53 kg

DRUGS (1)
  1. PARLODEL [Suspect]
     Indication: SUPPRESSED LACTATION
     Dosage: 2.5 MG, Q8H
     Route: 048
     Dates: start: 20071115, end: 20071116

REACTIONS (8)
  - DIZZINESS [None]
  - DYSPNOEA [None]
  - DYSSTASIA [None]
  - FATIGUE [None]
  - NAUSEA [None]
  - NECK PAIN [None]
  - VERTIGO [None]
  - VISUAL DISTURBANCE [None]
